FAERS Safety Report 15402233 (Version 1)
Quarter: 2018Q3

REPORT INFORMATION
  Report Type: Spontaneous
  Country: US (occurrence: US)
  Receive Date: 20180912
  Receipt Date: 20180912
  Transmission Date: 20181010
  Serious: Yes (Hospitalization)
  Sender: FDA-Public Use
  Company Number: None

PATIENT
  Age: 20 Year
  Sex: Male

DRUGS (1)
  1. ORKAMBI [Suspect]
     Active Substance: IVACAFTOR\LUMACAFTOR
     Dates: start: 201603, end: 20180912

REACTIONS (3)
  - Cystic fibrosis [None]
  - Condition aggravated [None]
  - Therapy non-responder [None]

NARRATIVE: CASE EVENT DATE: 20180615
